FAERS Safety Report 6983243-2 (Version None)
Quarter: 2010Q3

REPORT INFORMATION
  Report Type: 
  Country: None (occurrence: None)
  Receive Date: 20100914
  Receipt Date: 20100721
  Transmission Date: 20110219
  Serious: Yes (Other)
  Sender: FDA-Public Use
  Company Number: US-PFIZER INC-2010092114

PATIENT
  Sex: Male
  Weight: 97.959 kg

DRUGS (16)
  1. LYRICA [Suspect]
     Indication: DIABETIC NEUROPATHY
     Dosage: 75 MG, 2X/DAY
     Route: 048
     Dates: start: 20090101, end: 20090101
  2. LYRICA [Suspect]
     Dosage: 150 MG, 2X/DAY
     Route: 048
     Dates: start: 20090101
  3. LISINOPRIL [Concomitant]
     Indication: HYPERTENSION
     Dosage: 40 MG, 1X/DAY
  4. GLUCOTROL XL [Concomitant]
     Indication: DIABETES MELLITUS
     Dosage: UNK
  5. INDERAL [Concomitant]
     Dosage: 320 MG, 1X/DAY
  6. GLUCOPHAGE [Concomitant]
     Dosage: 500 MG, 2X/DAY
  7. NORVASC [Concomitant]
     Dosage: 10 MG, 1X/DAY
  8. ACETYLSALICYLIC ACID [Concomitant]
     Dosage: UNK, DAILY
  9. INSULIN [Concomitant]
     Indication: DIABETES MELLITUS
     Dosage: UNK
  10. INSULIN DETEMIR [Concomitant]
     Indication: DIABETES MELLITUS
     Dosage: 50 UNITS, 2X/DAY
  11. NOVOLOG [Concomitant]
     Indication: DIABETES MELLITUS
     Dosage: 20 UNITS, 2X/DAY
  12. POTASSIUM [Concomitant]
     Dosage: UNK, 2X/DAY
  13. ZAROXOLYN [Concomitant]
     Dosage: 2.5MG MONDAY, WEDNESDAY, FRIDAY
  14. ALLOPURINOL [Concomitant]
     Dosage: 100 MG, 1X/DAY
  15. COLCHICINE [Concomitant]
     Dosage: 6 MG, 1X/DAY
  16. LOPID [Concomitant]
     Dosage: 600 MG, 2X/DAY

REACTIONS (1)
  - TREMOR [None]
